FAERS Safety Report 10088930 (Version 1)
Quarter: 2014Q2

REPORT INFORMATION
  Report Type: Spontaneous
  Country: US (occurrence: None)
  Receive Date: 20140418
  Receipt Date: 20140418
  Transmission Date: 20141212
  Serious: Yes (Other)
  Sender: FDA-Public Use
  Company Number: None

PATIENT
  Age: 69 Year
  Sex: Female
  Weight: 81.19 kg

DRUGS (6)
  1. FUROSEMIDE [Suspect]
     Indication: FLUID RETENTION
     Dosage: 1 TABLET?APPROX 8 YEARS AGO
     Route: 048
  2. FUROSEMIDE [Concomitant]
  3. HYDRALOZONE [Concomitant]
  4. LOSINOPRIL [Concomitant]
  5. PRAVASTATIN [Concomitant]
  6. DILTIAZEM ERC [Concomitant]

REACTIONS (1)
  - Deafness [None]
